FAERS Safety Report 14965403 (Version 2)
Quarter: 2018Q2

REPORT INFORMATION
  Report Type: Spontaneous
  Country: LU (occurrence: LU)
  Receive Date: 20180601
  Receipt Date: 20180611
  Transmission Date: 20180711
  Serious: Yes (Hospitalization)
  Sender: FDA-Public Use
  Company Number: LU-BIOGEN-2018BI00587049

PATIENT
  Age: 53 Year
  Sex: Male
  Weight: 85 kg

DRUGS (1)
  1. TECFIDERA [Suspect]
     Active Substance: DIMETHYL FUMARATE
     Indication: MULTIPLE SCLEROSIS
     Dosage: 2 DOSAGE FORMS
     Route: 048
     Dates: start: 201502, end: 201802

REACTIONS (3)
  - CD4/CD8 ratio increased [Recovered/Resolved]
  - Brain abscess [Recovered/Resolved with Sequelae]
  - Lymphopenia [Recovered/Resolved]

NARRATIVE: CASE EVENT DATE: 201802
